FAERS Safety Report 9424412 (Version 1)
Quarter: 2013Q3

REPORT INFORMATION
  Report Type: Spontaneous
  Country: US (occurrence: None)
  Receive Date: 20130725
  Receipt Date: 20130725
  Transmission Date: 20140515
  Serious: Yes (Life-Threatening)
  Sender: FDA-Public Use
  Company Number: 2013AP006704

PATIENT
  Age: 73 Year
  Sex: Female

DRUGS (3)
  1. METFORMIN HCL TABLETS [Suspect]
     Indication: DIABETES MELLITUS
  2. LISINOPRIL TABLETS [Suspect]
  3. IBUPROFEN [Suspect]
     Indication: HUMERUS FRACTURE

REACTIONS (2)
  - Renal failure acute [None]
  - Hyperkalaemia [None]
